FAERS Safety Report 8003372-4 (Version None)
Quarter: 2011Q4

REPORT INFORMATION
  Report Type: 
  Country: None (occurrence: None)
  Receive Date: 20111222
  Receipt Date: 20111214
  Transmission Date: 20120403
  Serious: Yes (Other)
  Sender: FDA-Public Use
  Company Number: US-PURDUE-USA-2011-0079870

PATIENT
  Age: 58 Year
  Sex: Female

DRUGS (1)
  1. DILAUDID-HP [Suspect]
     Indication: PAIN
     Dosage: 1 DF, UNK
     Route: 042
     Dates: start: 20061201, end: 20061201

REACTIONS (1)
  - CARDIAC DISCOMFORT [None]
